FAERS Safety Report 23303907 (Version 1)
Quarter: 2023Q4

REPORT INFORMATION
  Report Type: Spontaneous
  Country: US (occurrence: US)
  Receive Date: 20231215
  Receipt Date: 20231215
  Transmission Date: 20240110
  Serious: Yes (Other)
  Sender: FDA-Public Use
  Company Number: US-PFIZER INC-202300441741

PATIENT
  Age: 40 Year
  Sex: Female
  Weight: 63.5 kg

DRUGS (1)
  1. OXBRYTA [Suspect]
     Active Substance: VOXELOTOR
     Indication: Sickle cell anaemia
     Dosage: THREE 500MG TABLETS EVERY MORNING WITH WATER AND SWALLOW IT
     Route: 048
     Dates: start: 20231005

REACTIONS (3)
  - Sickle cell anaemia with crisis [Unknown]
  - Headache [Recovered/Resolved with Sequelae]
  - Abdominal pain upper [Not Recovered/Not Resolved]

NARRATIVE: CASE EVENT DATE: 20231018
